FAERS Safety Report 9999131 (Version 19)
Quarter: 2021Q1

REPORT INFORMATION
  Report Type: Report from Study
  Country: US (occurrence: US)
  Receive Date: 20140312
  Receipt Date: 20210310
  Transmission Date: 20210420
  Serious: No
  Sender: FDA-Public Use
  Company Number: US-JNJFOC-20140110475

PATIENT
  Age: 53 Year
  Sex: Male

DRUGS (12)
  1. PREDNISONE. [Concomitant]
     Active Substance: PREDNISONE
     Dosage: TIMES 12 DAYS
     Route: 065
     Dates: start: 20130923
  2. SORIATANE [Concomitant]
     Active Substance: ACITRETIN
     Route: 065
     Dates: start: 20090930, end: 20121023
  3. STELARA [Suspect]
     Active Substance: USTEKINUMAB
     Indication: PSORIASIS
     Route: 058
     Dates: start: 20110322
  4. IMIQUIMOD. [Concomitant]
     Active Substance: IMIQUIMOD
     Route: 065
     Dates: start: 20131030
  5. GARLIC. [Concomitant]
     Active Substance: GARLIC
     Route: 065
  6. CLOBETASOL PROPIONATE. [Concomitant]
     Active Substance: CLOBETASOL PROPIONATE
     Route: 065
     Dates: start: 20100604, end: 20130326
  7. STELARA [Suspect]
     Active Substance: USTEKINUMAB
     Route: 058
     Dates: start: 20160217
  8. STELARA [Suspect]
     Active Substance: USTEKINUMAB
     Route: 058
     Dates: start: 20160803, end: 20171018
  9. PREDNISONE. [Concomitant]
     Active Substance: PREDNISONE
     Route: 065
     Dates: start: 20130815
  10. STELARA [Suspect]
     Active Substance: USTEKINUMAB
     Route: 058
     Dates: end: 20200108
  11. IMIQUIMOD. [Concomitant]
     Active Substance: IMIQUIMOD
     Route: 065
     Dates: start: 20130326
  12. TESTOSTERONE CYPIONATE. [Concomitant]
     Active Substance: TESTOSTERONE CYPIONATE
     Route: 065
     Dates: start: 20130121

REACTIONS (2)
  - Basal cell carcinoma [Unknown]
  - Squamous cell carcinoma [Unknown]

NARRATIVE: CASE EVENT DATE: 20120823
